FAERS Safety Report 7112045-1 (Version None)
Quarter: 2010Q4

REPORT INFORMATION
  Report Type: 
  Country: None (occurrence: None)
  Receive Date: 20101119
  Receipt Date: 20101110
  Transmission Date: 20110411
  Serious: No
  Sender: FDA-Public Use
  Company Number: US-PFIZER INC-2010123307

PATIENT
  Sex: Male
  Weight: 102.04 kg

DRUGS (8)
  1. GEODON [Suspect]
     Indication: ANXIETY
     Dosage: 40 MG, 2X/DAY
     Route: 048
     Dates: start: 20100927, end: 20100929
  2. TOPAMAX [Concomitant]
     Dosage: UNK
  3. LISINOPRIL [Concomitant]
     Dosage: 50 MG, 3X/DAY
  4. SOMA [Concomitant]
     Dosage: 350 MG, 2X/DAY
  5. EFFEXOR [Concomitant]
     Dosage: 375 MG, IN THE MORNING
  6. OXYCODONE [Concomitant]
     Dosage: 7.25/325 MG, 3X/DAY
  7. CENTRUM [Concomitant]
     Dosage: UNK, DAILY
  8. NEXIUM [Concomitant]
     Dosage: 40 MG, DAILY

REACTIONS (2)
  - DIZZINESS [None]
  - PALPITATIONS [None]
